FAERS Safety Report 7888619-7 (Version None)
Quarter: 2011Q4

REPORT INFORMATION
  Report Type: 
  Country: None (occurrence: None)
  Receive Date: 20111103
  Receipt Date: 20111024
  Transmission Date: 20120403
  Serious: Yes (Hospitalization)
  Sender: FDA-Public Use
  Company Number: US-BAYER-2011-017086

PATIENT
  Age: 27 Year
  Sex: Female
  Weight: 100.14 kg

DRUGS (10)
  1. PROVENTIL-HFA [Concomitant]
     Dosage: 2 DF, QID
     Route: 055
  2. DOXYCYCLINE [Concomitant]
     Dosage: 100 MG, BID
     Route: 048
  3. XANAX [Concomitant]
     Route: 048
  4. METOPROLOL TARTRATE [Concomitant]
     Route: 048
  5. YAZ [Suspect]
     Indication: PRODUCT USED FOR UNKNOWN INDICATION
     Dosage: UNK
     Dates: start: 20071022, end: 20090801
  6. CELEXA [Concomitant]
     Dosage: 20 MG, QD
     Route: 048
  7. PHENTERMINE [Concomitant]
     Route: 048
  8. DYAZIDE [Concomitant]
  9. LORTAB [Concomitant]
     Route: 048
  10. PREDNISONE [Concomitant]
     Dosage: 10 MG, BID
     Route: 048

REACTIONS (2)
  - CHOLECYSTITIS CHRONIC [None]
  - ABDOMINAL PAIN [None]
